FAERS Safety Report 10930938 (Version 1)
Quarter: 2015Q1

REPORT INFORMATION
  Report Type: Spontaneous
  Country: US (occurrence: US)
  Receive Date: 20150319
  Receipt Date: 20150319
  Transmission Date: 20150721
  Serious: No
  Sender: FDA-Public Use
  Company Number: US-BAUSCH-SYM-2014-23387

PATIENT
  Sex: Female

DRUGS (2)
  1. RETIN-A [Suspect]
     Active Substance: TRETINOIN
     Indication: THERAPEUTIC SKIN CARE TOPICAL
     Dosage: APPLY TO FACE DAILY AT NIGHT
     Route: 061
  2. NU-DERM EXFODERM FORTE [Suspect]
     Active Substance: COSMETICS
     Indication: THERAPEUTIC SKIN CARE TOPICAL
     Dosage: APPLY TO FACE DAILY IN THE MORNING
     Route: 061

REACTIONS (2)
  - Application site dryness [Recovering/Resolving]
  - Application site swelling [Recovering/Resolving]
